FAERS Safety Report 11621621 (Version 1)
Quarter: 2015Q4

REPORT INFORMATION
  Report Type: Spontaneous
  Country: CA (occurrence: CA)
  Receive Date: 20151013
  Receipt Date: 20151013
  Transmission Date: 20160304
  Serious: Yes (Death, Other)
  Sender: FDA-Public Use
  Company Number: CA-HOSPIRA-3031661

PATIENT
  Age: 31 Year
  Sex: Female

DRUGS (3)
  1. MORPHINE SULPHATE [Suspect]
     Active Substance: MORPHINE SULFATE
     Indication: PAIN
     Route: 065
  2. ACETAMINOPHEN. [Suspect]
     Active Substance: ACETAMINOPHEN
     Indication: DENTAL DISCOMFORT
     Route: 065
  3. IBUPROFEN. [Suspect]
     Active Substance: IBUPROFEN
     Indication: DENTAL DISCOMFORT
     Route: 065

REACTIONS (8)
  - Multi-organ failure [Fatal]
  - Heart rate decreased [Fatal]
  - Drug ineffective [Fatal]
  - Hepatic failure [Fatal]
  - Shock [Fatal]
  - Depressed level of consciousness [Fatal]
  - Disorientation [Fatal]
  - Respiratory rate decreased [Fatal]
